FAERS Safety Report 24004950 (Version 1)
Quarter: 2024Q2

REPORT INFORMATION
  Report Type: Spontaneous
  Country: US (occurrence: US)
  Receive Date: 20240624
  Receipt Date: 20240624
  Transmission Date: 20240716
  Serious: Yes (Death)
  Sender: FDA-Public Use
  Company Number: US-PFIZER INC-202400195841

PATIENT
  Age: 17 Year
  Sex: Female

DRUGS (7)
  1. FENTANYL CITRATE [Suspect]
     Active Substance: FENTANYL CITRATE
     Dosage: UNK
  2. ETHYL ALCOHOL [Suspect]
     Active Substance: ALCOHOL
     Dosage: UNK
  3. XYLAZINE [Suspect]
     Active Substance: XYLAZINE
     Dosage: UNK
  4. BENZOYLECGONINE [Concomitant]
     Active Substance: BENZOYLECGONINE
     Dosage: UNK
  5. DIPHENHYDRAMINE [Concomitant]
     Active Substance: DIPHENHYDRAMINE
  6. ACETAMINOPHEN [Concomitant]
     Active Substance: ACETAMINOPHEN
     Dosage: UNK
  7. CANNABIDIOL\HERBALS\TETRAHYDROCANNABINOL UNSPECIFIED [Concomitant]
     Active Substance: CANNABIDIOL\HERBALS\TETRAHYDROCANNABINOL UNSPECIFIED
     Dosage: UNK

REACTIONS (1)
  - Toxicity to various agents [Fatal]
